FAERS Safety Report 24547297 (Version 1)
Quarter: 2024Q4

REPORT INFORMATION
  Report Type: Report from Study
  Country: US (occurrence: US)
  Receive Date: 20241025
  Receipt Date: 20241025
  Transmission Date: 20250115
  Serious: Yes (Death)
  Sender: ABBVIE
  Company Number: US-ABBVIE-5976009

PATIENT
  Age: 81 Year
  Sex: Male

DRUGS (1)
  1. SKYRIZI [Suspect]
     Active Substance: RISANKIZUMAB-RZAA
     Indication: Crohn^s disease
     Dosage: STOP DATE TEXT: NOT APPLICABLE FORM STRENGTH: 600 MILLIGRAM
     Route: 042
     Dates: start: 20240826

REACTIONS (1)
  - Death [Fatal]

NARRATIVE: CASE EVENT DATE: 20241004
